FAERS Safety Report 18900379 (Version 1)
Quarter: 2021Q1

REPORT INFORMATION
  Report Type: Spontaneous
  Country: US (occurrence: US)
  Receive Date: 20210217
  Receipt Date: 20210217
  Transmission Date: 20210420
  Serious: No
  Sender: FDA-Public Use
  Company Number: US-GLAXOSMITHKLINE-US2021023686

PATIENT
  Age: 78 Year
  Sex: Female

DRUGS (1)
  1. FLONASE ALLERGY RELIEF [Suspect]
     Active Substance: FLUTICASONE PROPIONATE
     Indication: HYPERSENSITIVITY
     Dosage: UNK, 72 SPRAYS

REACTIONS (4)
  - Ageusia [Unknown]
  - Throat irritation [Unknown]
  - Anosmia [Unknown]
  - Dysphonia [Unknown]
